FAERS Safety Report 12552021 (Version 1)
Quarter: 2016Q3

REPORT INFORMATION
  Report Type: Spontaneous
  Country: US (occurrence: None)
  Receive Date: 20160712
  Receipt Date: 20160712
  Transmission Date: 20161109
  Serious: Yes (Disabling)
  Sender: FDA-Public Use
  Company Number: None

PATIENT
  Age: 68 Year
  Sex: Female
  Weight: 47.63 kg

DRUGS (6)
  1. SANDOSTATIN [Concomitant]
     Active Substance: OCTREOTIDE ACETATE
  2. LORAZEPAM. [Concomitant]
     Active Substance: LORAZEPAM
  3. GASX [Concomitant]
  4. HYDROCODONE-ACETOMINOPHEN 10-325, 10 MG AMNEAL PHARMA [Suspect]
     Active Substance: ACETAMINOPHEN\HYDROCODONE
     Indication: INTERVERTEBRAL DISC PROTRUSION
     Dosage: 120 TABLET(S) EVERY 8 HOURS TAKEN BY MOUTH
     Route: 048
     Dates: start: 20160612, end: 20160710
  5. HYDROCODONE-ACETOMINOPHEN 10-325, 10 MG AMNEAL PHARMA [Suspect]
     Active Substance: ACETAMINOPHEN\HYDROCODONE
     Indication: CANCER PAIN
     Dosage: 120 TABLET(S) EVERY 8 HOURS TAKEN BY MOUTH
     Route: 048
     Dates: start: 20160612, end: 20160710
  6. CHEMOTHERAPY [Concomitant]
     Active Substance: UNSPECIFIED INGREDIENT

REACTIONS (4)
  - Nausea [None]
  - Pruritus [None]
  - Abdominal pain upper [None]
  - Urticaria [None]

NARRATIVE: CASE EVENT DATE: 20160612
